FAERS Safety Report 14630352 (Version 1)
Quarter: 2018Q1

REPORT INFORMATION
  Report Type: Spontaneous
  Country: US (occurrence: US)
  Receive Date: 20180313
  Receipt Date: 20180313
  Transmission Date: 20180509
  Serious: Yes (Life-Threatening, Disabling)
  Sender: FDA-Public Use
  Company Number: None

PATIENT
  Age: 36 Year
  Sex: Female
  Weight: 57.15 kg

DRUGS (1)
  1. DEPO-PROVERA [Suspect]
     Active Substance: MEDROXYPROGESTERONE ACETATE
     Indication: MENSTRUAL CYCLE MANAGEMENT
     Dosage: QUANTITY:1 INJECTION(S);OTHER FREQUENCY:EVERY 12 WEEKS;?
     Route: 030

REACTIONS (7)
  - Suicidal ideation [None]
  - Feeling abnormal [None]
  - Emotional disorder [None]
  - Depressed mood [None]
  - Sexual dysfunction [None]
  - Depression [None]
  - Fear [None]

NARRATIVE: CASE EVENT DATE: 20180214
